FAERS Safety Report 10100755 (Version 1)
Quarter: 2014Q2

REPORT INFORMATION
  Report Type: Report from Study
  Country: US (occurrence: US)
  Receive Date: 20140423
  Receipt Date: 20140423
  Transmission Date: 20141212
  Serious: No
  Sender: FDA-Public Use
  Company Number: US-009507513-1404USA008323

PATIENT
  Age: 17 Year
  Sex: Female
  Weight: 157 kg

DRUGS (1)
  1. IMPLANON [Suspect]
     Dosage: UNK
     Route: 059
     Dates: start: 20130606, end: 20140407

REACTIONS (1)
  - Medical device removal [Unknown]
